FAERS Safety Report 11926284 (Version 4)
Quarter: 2016Q1

REPORT INFORMATION
  Report Type: Spontaneous
  Country: JP (occurrence: JP)
  Receive Date: 20160119
  Receipt Date: 20160209
  Transmission Date: 20160526
  Serious: Yes (Hospitalization)
  Sender: FDA-Public Use
  Company Number: JP-009507513-1601JPN005254

PATIENT
  Sex: Female

DRUGS (5)
  1. REMERON [Suspect]
     Active Substance: MIRTAZAPINE
     Indication: DEPRESSION
     Dosage: DAILY DOSAGE UNKNOWN
     Route: 048
     Dates: end: 20160116
  2. MAGLAX (MAGNESIUM OXIDE) [Suspect]
     Active Substance: MAGNESIUM OXIDE
     Dosage: DAILY DOSAGE UNKNOWN, FORMULATION POR
     Route: 048
  3. SELENICA R [Suspect]
     Active Substance: VALPROATE SODIUM
     Dosage: DAILY DOSAGE UNKNOWN, FORMULATION POR
     Route: 048
  4. ABILIFY [Suspect]
     Active Substance: ARIPIPRAZOLE
     Dosage: DAILY DOSAGE UNKNOWN, FORMULATION POR
     Route: 048
     Dates: start: 2014, end: 20160115
  5. JZOLOFT [Suspect]
     Active Substance: SERTRALINE HYDROCHLORIDE
     Dosage: DAILY DOSAGE UNKNOWN
     Route: 065
     Dates: start: 201601

REACTIONS (6)
  - Drug ineffective [Unknown]
  - Dysarthria [Not Recovered/Not Resolved]
  - Eating disorder [Unknown]
  - Depression [Unknown]
  - Extrapyramidal disorder [Not Recovered/Not Resolved]
  - Gait disturbance [Not Recovered/Not Resolved]

NARRATIVE: CASE EVENT DATE: 201512
